FAERS Safety Report 5590124-8 (Version None)
Quarter: 2008Q1

REPORT INFORMATION
  Report Type: 
  Country: None (occurrence: None)
  Receive Date: 20080114
  Receipt Date: 20070523
  Transmission Date: 20080703
  Serious: No
  Sender: FDA-Public Use
  Company Number: US-ABBOTT-07P-163-0369378-00

PATIENT
  Sex: Female
  Weight: 15.436 kg

DRUGS (3)
  1. OMNICEF [Suspect]
     Indication: PHARYNGITIS STREPTOCOCCAL
     Route: 048
     Dates: start: 20070510, end: 20070518
  2. OMNICEF [Suspect]
     Route: 048
  3. SINGULAIR [Concomitant]
     Indication: NASAL CONGESTION
     Route: 048
     Dates: start: 20060901

REACTIONS (4)
  - OEDEMA PERIPHERAL [None]
  - PRURITUS [None]
  - PYREXIA [None]
  - URTICARIA [None]
